FAERS Safety Report 7685228-X (Version None)
Quarter: 2011Q3

REPORT INFORMATION
  Report Type: 
  Country: None (occurrence: None)
  Receive Date: 20110816
  Receipt Date: 20110808
  Transmission Date: 20111222
  Serious: Yes (Hospitalization, Other)
  Sender: FDA-Public Use
  Company Number: US-ELI_LILLY_AND_COMPANY-US201008003449

PATIENT
  Sex: Male
  Weight: 129.25 kg

DRUGS (9)
  1. LORCET-HD [Concomitant]
     Dosage: 10 MG, PRN
  2. PREDNISONE [Concomitant]
     Dosage: 5 MG, QD
  3. ALBUTEROL SULFATE AUTOHALER [Concomitant]
  4. PAXIL [Concomitant]
  5. METFORMIN HCL [Concomitant]
     Indication: TYPE 2 DIABETES MELLITUS
  6. PROTONIX [Concomitant]
  7. GLUCOPHAGE [Concomitant]
     Dosage: 500 MG, BID
  8. BYETTA [Suspect]
     Indication: TYPE 2 DIABETES MELLITUS
     Dosage: UNK
     Dates: start: 20060810, end: 20071009
  9. LANTUS [Concomitant]
     Dosage: 20 U, EACH EVENING

REACTIONS (2)
  - PANCREATITIS ACUTE [None]
  - OFF LABEL USE [None]
